FAERS Safety Report 19046706 (Version 1)
Quarter: 2021Q1

REPORT INFORMATION
  Report Type: Report from Study
  Country: US (occurrence: US)
  Receive Date: 20210323
  Receipt Date: 20210323
  Transmission Date: 20210420
  Serious: Yes (Other)
  Sender: FDA-Public Use
  Company Number: US-BAYER-2021-038914

PATIENT
  Age: 49 Year
  Sex: Female

DRUGS (11)
  1. STIVARGA [Suspect]
     Active Substance: REGORAFENIB
     Indication: COLORECTAL CANCER
     Dosage: DAILY DOSE 120 MG FOR ONE WEEK
     Route: 048
     Dates: start: 20210121, end: 20210127
  2. ZOFRAN [Concomitant]
     Active Substance: ONDANSETRON HYDROCHLORIDE
     Dosage: UNK
  3. THERAGRAN [VITAMINS NOS] [Concomitant]
     Dosage: UNK
  4. THERA?M [Concomitant]
     Dosage: UNK
  5. STIVARGA [Suspect]
     Active Substance: REGORAFENIB
     Indication: COLORECTAL CANCER
     Dosage: 160 MG, QD FOR 21 DAYS OF 28 DAY CYCLE
     Route: 048
     Dates: start: 20210128
  6. LOPERAMIDE HYDROCHLORIDE. [Concomitant]
     Active Substance: LOPERAMIDE HYDROCHLORIDE
     Dosage: UNK
  7. VITAMIN D3 [Concomitant]
     Active Substance: CHOLECALCIFEROL
     Dosage: UNK
  8. D3 50 [Concomitant]
     Dosage: UNK
  9. STIVARGA [Suspect]
     Active Substance: REGORAFENIB
     Indication: COLORECTAL CANCER
     Dosage: DAILY DOSE 80 MG FOR ONE WEEK
     Route: 048
     Dates: start: 20210114, end: 20210120
  10. COLACE [Concomitant]
     Active Substance: DOCUSATE SODIUM
     Dosage: UNK
  11. LOPERAMIDE HYDROCHLORIDE. [Concomitant]
     Active Substance: LOPERAMIDE HYDROCHLORIDE
     Dosage: UNK

REACTIONS (7)
  - Skin disorder [Unknown]
  - Constipation [Not Recovered/Not Resolved]
  - Pruritus [None]
  - Neuropathy peripheral [None]
  - Constipation [None]
  - Diarrhoea [Not Recovered/Not Resolved]
  - Off label use [None]

NARRATIVE: CASE EVENT DATE: 20210114
